FAERS Safety Report 22044750 (Version 1)
Quarter: 2023Q1

REPORT INFORMATION
  Report Type: Spontaneous
  Country: FR (occurrence: FR)
  Receive Date: 20230228
  Receipt Date: 20230228
  Transmission Date: 20230418
  Serious: Yes (Hospitalization)
  Sender: FDA-Public Use
  Company Number: None

PATIENT
  Age: 24 Year
  Sex: Male
  Weight: 59 kg

DRUGS (9)
  1. VALIUM [Suspect]
     Active Substance: DIAZEPAM
     Indication: Delirium
     Route: 050
     Dates: start: 20221214, end: 20221230
  2. LOXAPINE [Suspect]
     Active Substance: LOXAPINE
     Indication: Delirium
     Route: 050
     Dates: start: 20221214, end: 20221216
  3. TROPATEPINE HYDROCHLORIDE [Suspect]
     Active Substance: TROPATEPINE HYDROCHLORIDE
     Indication: Delirium
     Route: 050
     Dates: start: 20221208, end: 20221221
  4. AMISULPRIDE [Suspect]
     Active Substance: AMISULPRIDE
     Indication: Delirium
     Route: 050
     Dates: start: 20221118, end: 20221221
  5. ARIPIPRAZOLE [Suspect]
     Active Substance: ARIPIPRAZOLE
     Indication: Delirium
     Route: 050
     Dates: start: 20221130, end: 20221215
  6. ABILIFY MAINTENA [Suspect]
     Active Substance: ARIPIPRAZOLE
     Indication: Delirium
     Dosage: ; IN TOTAL
     Route: 050
     Dates: start: 20221213, end: 20221213
  7. TRIMEPRAZINE [Suspect]
     Active Substance: TRIMEPRAZINE
     Indication: Delirium
     Route: 050
     Dates: start: 20221122, end: 20221221
  8. LORAZEPAM [Suspect]
     Active Substance: LORAZEPAM
     Indication: Delirium
     Route: 050
     Dates: start: 20221122, end: 20221213
  9. CYAMEMAZINE [Suspect]
     Active Substance: CYAMEMAZINE
     Indication: Delirium
     Dosage: ; AS REQUIRED
     Route: 050
     Dates: start: 20221118, end: 20221212

REACTIONS (1)
  - Bladder dilatation [Recovered/Resolved]

NARRATIVE: CASE EVENT DATE: 20221215
